FAERS Safety Report 4636515-0 (Version None)
Quarter: 2005Q2

REPORT INFORMATION
  Report Type: 
  Country: None (occurrence: None)
  Receive Date: 20050414
  Receipt Date: 20050414
  Transmission Date: 20051028
  Serious: Yes (Life-Threatening)
  Sender: FDA-Public Use
  Company Number: None

PATIENT
  Age: 54 Year
  Sex: Male
  Weight: 90.7194 kg

DRUGS (2)
  1. LAMICTAL [Suspect]
     Indication: BIPOLAR II DISORDER
     Dosage: 250 MG  DAY  ORAL
     Route: 048
     Dates: start: 20050301, end: 20050411
  2. BEXTRA [Concomitant]

REACTIONS (4)
  - RASH [None]
  - SKIN ATROPHY [None]
  - SKIN DISORDER [None]
  - SKIN HAEMORRHAGE [None]
